FAERS Safety Report 8391922-8 (Version None)
Quarter: 2012Q2

REPORT INFORMATION
  Report Type: 
  Country: None (occurrence: None)
  Receive Date: 20120529
  Receipt Date: 20120522
  Transmission Date: 20120825
  Serious: Yes (Other)
  Sender: FDA-Public Use
  Company Number: JP-GLAXOSMITHKLINE-B0798673A

PATIENT
  Sex: Male

DRUGS (5)
  1. CEFDINIR [Concomitant]
     Indication: SKIN BACTERIAL INFECTION
     Dosage: 100MG PER DAY
     Route: 048
     Dates: start: 20120420, end: 20120422
  2. ALLOPURINOL [Concomitant]
     Indication: DIALYSIS
     Dosage: 100MG PER DAY
     Route: 048
  3. ASPIRIN [Concomitant]
     Indication: NASOPHARYNGITIS
     Dosage: 9G PER DAY
     Route: 048
     Dates: start: 20120420, end: 20120422
  4. VALTREX [Suspect]
     Indication: HERPES ZOSTER
     Dosage: 1000MG PER DAY
     Route: 048
     Dates: start: 20120420, end: 20120420
  5. UNKNOWN [Concomitant]
     Dosage: 6.25MG PER DAY
     Route: 048

REACTIONS (8)
  - ABNORMAL BEHAVIOUR [None]
  - AGGRESSION [None]
  - ALTERED STATE OF CONSCIOUSNESS [None]
  - HALLUCINATION, VISUAL [None]
  - RESTLESSNESS [None]
  - INAPPROPRIATE AFFECT [None]
  - DYSARTHRIA [None]
  - CSF PROTEIN INCREASED [None]
